FAERS Safety Report 26154936 (Version 1)
Quarter: 2025Q4

REPORT INFORMATION
  Report Type: Spontaneous
  Country: ID (occurrence: ID)
  Receive Date: 20251215
  Receipt Date: 20251215
  Transmission Date: 20260118
  Serious: Yes (Death)
  Sender: MITSUBISHI TANABE PHARMA
  Company Number: ID-TANABE_PHARMA-MTPA2025-0021985

PATIENT

DRUGS (1)
  1. RADICAVA [Suspect]
     Active Substance: EDARAVONE
     Indication: Amyotrophic lateral sclerosis
     Dosage: 30 MILLIGRAM/20 ML, DOSAGE AS PRESCRIBED UNTIL THE SECOND CYCLE
     Route: 042

REACTIONS (2)
  - Pneumonia [Fatal]
  - Gastrointestinal haemorrhage [Fatal]

NARRATIVE: CASE EVENT DATE: 20250101
